FAERS Safety Report 20567538 (Version 4)
Quarter: 2022Q3

REPORT INFORMATION
  Report Type: Spontaneous
  Country: US (occurrence: US)
  Receive Date: 20220308
  Receipt Date: 20220812
  Transmission Date: 20221026
  Serious: No
  Sender: FDA-Public Use
  Company Number: US-PFIZER INC-2021832481

PATIENT
  Age: 74 Year
  Sex: Female
  Weight: 104.33 kg

DRUGS (3)
  1. IBRANCE [Suspect]
     Active Substance: PALBOCICLIB
     Indication: Malignant nipple neoplasm female
     Dosage: ONCE DAILY FOR 21 DAYS ON 7 DAYS OFF
     Dates: start: 20210127, end: 202206
  2. IBRANCE [Suspect]
     Active Substance: PALBOCICLIB
     Indication: Breast cancer female
  3. LETROZOLE [Concomitant]
     Active Substance: LETROZOLE
     Indication: Breast cancer female
     Dosage: 2.5 MG
     Dates: start: 202101

REACTIONS (6)
  - Feeling abnormal [Unknown]
  - Fatigue [Unknown]
  - Pyrexia [Unknown]
  - Stress [Unknown]
  - Weight decreased [Unknown]
  - Decreased appetite [Unknown]
